FAERS Safety Report 14177901 (Version 6)
Quarter: 2020Q3

REPORT INFORMATION
  Report Type: Report from Study
  Country: US (occurrence: US)
  Receive Date: 20171110
  Receipt Date: 20200722
  Transmission Date: 20201102
  Serious: Yes (Hospitalization, Other)
  Sender: FDA-Public Use
  Company Number: PHEH2017US035650

PATIENT
  Sex: Male
  Weight: 118.3 kg

DRUGS (1)
  1. COSENTYX [Suspect]
     Active Substance: SECUKINUMAB
     Indication: PSORIASIS
     Dosage: 300 MG, QMO (EVERY 4 WEEKS)
     Route: 065
     Dates: start: 20161213, end: 20170924

REACTIONS (16)
  - Sepsis [Recovering/Resolving]
  - Feeling abnormal [Unknown]
  - Acute respiratory failure [Not Recovered/Not Resolved]
  - Headache [Unknown]
  - Dyspnoea [Unknown]
  - Renal failure [Not Recovered/Not Resolved]
  - Dysphagia [Unknown]
  - Inappropriate schedule of product administration [Unknown]
  - Pyrexia [Unknown]
  - Hypoxic-ischaemic encephalopathy [Unknown]
  - Sinusitis [Unknown]
  - Mental impairment [Unknown]
  - Cytomegalovirus infection [Unknown]
  - Deep vein thrombosis [Unknown]
  - White blood cell count abnormal [Unknown]
  - Rhonchi [Unknown]

NARRATIVE: CASE EVENT DATE: 20161213
